FAERS Safety Report 20128551 (Version 1)
Quarter: 2021Q4

REPORT INFORMATION
  Report Type: Spontaneous
  Country: US (occurrence: US)
  Receive Date: 20211130
  Receipt Date: 20211130
  Transmission Date: 20220303
  Serious: Yes (Hospitalization, Other)
  Sender: FDA-Public Use
  Company Number: US-CELLTRION HEALTHCARE HUNGARY KFT-2020US033597

PATIENT
  Age: 4 Decade
  Sex: Female

DRUGS (2)
  1. PREDNISONE [Suspect]
     Active Substance: PREDNISONE
     Indication: Rheumatoid arthritis
     Dosage: UNK
     Route: 065
  2. RITUXIMAB [Suspect]
     Active Substance: RITUXIMAB
     Indication: Rheumatoid arthritis
     Dosage: UNK
     Route: 065

REACTIONS (9)
  - Coxsackie viral infection [Recovering/Resolving]
  - Deafness neurosensory [Recovering/Resolving]
  - Enterovirus infection [Recovering/Resolving]
  - Fat necrosis [Recovering/Resolving]
  - Haemophagocytic lymphohistiocytosis [Recovering/Resolving]
  - Oedema [Recovering/Resolving]
  - Pancreatitis acute [Recovering/Resolving]
  - Panniculitis [Recovering/Resolving]
  - Type 1 diabetes mellitus [Recovering/Resolving]
